FAERS Safety Report 4876425-7 (Version None)
Quarter: 2006Q1

REPORT INFORMATION
  Report Type: 
  Country: None (occurrence: None)
  Receive Date: 20060106
  Receipt Date: 20051229
  Transmission Date: 20060701
  Serious: Yes (Hospitalization)
  Sender: FDA-Public Use
  Company Number: GXKR2005US02218

PATIENT
  Age: 80 Year
  Sex: Male

DRUGS (4)
  1. METFORMIN (NGX) (METFORMIN) [Suspect]
     Indication: DIABETES MELLITUS NON-INSULIN-DEPENDENT
  2. ENALAPRIL MALEATE [Suspect]
     Dosage: UNK
  3. SERTRALINE HYDROCHLORIDE [Suspect]
     Dosage: UNK
  4. GLIPIZIDE [Suspect]
     Dosage: UNK

REACTIONS (2)
  - LACTIC ACIDOSIS [None]
  - PNEUMONIA [None]
